FAERS Safety Report 9948984 (Version 1)
Quarter: 2014Q1

REPORT INFORMATION
  Report Type: Spontaneous
  Country: IT (occurrence: IT)
  Receive Date: 20140303
  Receipt Date: 20140303
  Transmission Date: 20141002
  Serious: Yes (Other)
  Sender: FDA-Public Use
  Company Number: IT-MYLANLABS-2014S1003895

PATIENT
  Age: 52 Year
  Sex: Female

DRUGS (1)
  1. LEVOFLOXACIN [Suspect]
     Indication: PHARYNGITIS
     Dosage: 500 MG TOTAL
     Route: 048
     Dates: start: 20131225, end: 20131225

REACTIONS (2)
  - Hyperhidrosis [Recovering/Resolving]
  - Presyncope [Recovering/Resolving]
